FAERS Safety Report 7296858-1 (Version None)
Quarter: 2011Q1

REPORT INFORMATION
  Report Type: 
  Country: None (occurrence: None)
  Receive Date: 20110204
  Receipt Date: 20110124
  Transmission Date: 20110831
  Serious: Yes (Hospitalization)
  Sender: FDA-Public Use
  Company Number: DSA_44854_2011

PATIENT
  Sex: Female

DRUGS (3)
  1. DIOVAN [Suspect]
     Indication: PRODUCT USED FOR UNKNOWN INDICATION
     Dosage: 320 MG QD
  2. AMFEBUTAMONE (AMFEBUTAMONE-BUPROPION HYDROCHLORIDE) 150 MG [Suspect]
     Indication: ANXIETY
     Dosage: 150 MG QD ORAL
     Route: 048
  3. NORVASC [Concomitant]

REACTIONS (3)
  - DYSGEUSIA [None]
  - ANXIETY [None]
  - DRUG INTERACTION [None]
